FAERS Safety Report 10364998 (Version 1)
Quarter: 2014Q3

REPORT INFORMATION
  Report Type: Spontaneous
  Country: US (occurrence: US)
  Receive Date: 20140806
  Receipt Date: 20140806
  Transmission Date: 20150326
  Serious: No
  Sender: FDA-Public Use
  Company Number: US-GLAXOSMITHKLINE-A1054778A

PATIENT
  Age: 74 Year
  Sex: Male

DRUGS (20)
  1. FLUTICASONE [Concomitant]
     Active Substance: FLUTICASONE\FLUTICASONE PROPIONATE
  2. ALLOPURINOL. [Concomitant]
     Active Substance: ALLOPURINOL
  3. VITAMIN B12 [Concomitant]
     Active Substance: CYANOCOBALAMIN
  4. FAMOTIDINE. [Concomitant]
     Active Substance: FAMOTIDINE
  5. CALCIUM [Concomitant]
     Active Substance: CALCIUM
  6. WELLBUTRIN [Concomitant]
     Active Substance: BUPROPION HYDROCHLORIDE
  7. FUROSEMIDE. [Concomitant]
     Active Substance: FUROSEMIDE
  8. DILTIAZEM [Concomitant]
     Active Substance: DILTIAZEM
  9. ESCITALOPRAM [Concomitant]
     Active Substance: ESCITALOPRAM OXALATE
  10. DONEPEZIL [Concomitant]
     Active Substance: DONEPEZIL
  11. ISOSORBIDE [Concomitant]
     Active Substance: ISOSORBIDE
  12. IBUPROFEN. [Concomitant]
     Active Substance: IBUPROFEN
  13. TERAZOSIN [Concomitant]
     Active Substance: TERAZOSIN\TERAZOSIN HYDROCHLORIDE
  14. TOLTERODINE [Concomitant]
     Active Substance: TOLTERODINE
  15. VITAMIN D3 [Concomitant]
     Active Substance: CHOLECALCIFEROL
  16. SIMVASTATIN. [Concomitant]
     Active Substance: SIMVASTATIN
  17. ADVAIR HFA [Suspect]
     Active Substance: FLUTICASONE PROPIONATE\SALMETEROL XINAFOATE
     Indication: CHRONIC OBSTRUCTIVE PULMONARY DISEASE
     Dosage: 2PUFF TWICE PER DAY
     Route: 055
     Dates: start: 2010
  18. BABY ASPIRIN [Concomitant]
     Active Substance: ASPIRIN
  19. LISINOPRIL. [Concomitant]
     Active Substance: LISINOPRIL
  20. CARBIDOPA/LEVODOPA [Concomitant]
     Active Substance: CARBIDOPA\LEVODOPA

REACTIONS (5)
  - Dyspnoea [Not Recovered/Not Resolved]
  - Fatigue [Unknown]
  - Depression [Unknown]
  - Drug ineffective [Unknown]
  - Pulmonary function test abnormal [Unknown]

NARRATIVE: CASE EVENT DATE: 201308
